FAERS Safety Report 7069307-6 (Version None)
Quarter: 2010Q4

REPORT INFORMATION
  Report Type: 
  Country: None (occurrence: None)
  Receive Date: 20101028
  Receipt Date: 20101018
  Transmission Date: 20110411
  Serious: Yes (Other)
  Sender: FDA-Public Use
  Company Number: BR-ABBOTT-10P-020-0679124-00

PATIENT
  Sex: Female
  Weight: 52 kg

DRUGS (3)
  1. HUMIRA [Suspect]
     Indication: RHEUMATOID ARTHRITIS
     Route: 058
     Dates: start: 20090101, end: 20100101
  2. REUQUINOL [Concomitant]
     Indication: PAIN
     Route: 048
     Dates: start: 20000101
  3. CELEBRA [Concomitant]
     Indication: PAIN
     Route: 048
     Dates: start: 20040101

REACTIONS (6)
  - ANAEMIA [None]
  - ARTHRALGIA [None]
  - ARTHRITIS [None]
  - MUSCULOSKELETAL STIFFNESS [None]
  - NECK PAIN [None]
  - PAIN IN EXTREMITY [None]
